FAERS Safety Report 8617109-9 (Version None)
Quarter: 2012Q3

REPORT INFORMATION
  Report Type: 
  Country: None (occurrence: None)
  Receive Date: 20120823
  Receipt Date: 20120817
  Transmission Date: 20120928
  Serious: No
  Sender: FDA-Public Use
  Company Number: US-009507513-1208USA008321

PATIENT

DRUGS (3)
  1. ZETIA [Suspect]
     Indication: BLOOD CHOLESTEROL INCREASED
     Dosage: 10 MG, QD
     Route: 048
     Dates: start: 20100101
  2. VAGIFEM [Concomitant]
  3. WELCHOL [Suspect]
     Indication: BLOOD CHOLESTEROL INCREASED

REACTIONS (3)
  - DRUG INEFFECTIVE [None]
  - PAIN IN EXTREMITY [None]
  - ASTHENIA [None]
